FAERS Safety Report 6290027-X (Version None)
Quarter: 2009Q3

REPORT INFORMATION
  Report Type: 
  Country: None (occurrence: None)
  Receive Date: 20090730
  Receipt Date: 20090725
  Transmission Date: 20100115
  Serious: Yes (Life-Threatening, Hospitalization)
  Sender: FDA-Public Use
  Company Number: GR-BAYER-200926630GPV

PATIENT
  Age: 62 Year
  Sex: Male
  Weight: 100 kg

DRUGS (8)
  1. NEXAVAR [Suspect]
     Indication: HEPATIC NEOPLASM MALIGNANT
     Route: 048
     Dates: start: 20090612, end: 20090708
  2. DEPAKENE [Concomitant]
     Indication: MENTAL DISORDER
     Route: 048
  3. ALOPERIDIN [Concomitant]
     Indication: MENTAL DISORDER
     Route: 030
  4. LONALGAL [Concomitant]
     Indication: PAIN
     Route: 048
     Dates: start: 20090504
  5. VIREAD [Concomitant]
     Indication: HEPATITIS B
     Route: 048
     Dates: start: 20090521, end: 20090624
  6. LIPITOR [Concomitant]
     Indication: HYPERLIPIDAEMIA
     Route: 048
     Dates: start: 20090521, end: 20090624
  7. PARAFFIN OIL [Concomitant]
     Indication: CONSTIPATION
     Route: 048
     Dates: start: 20090521, end: 20090615
  8. LERCARDIL [Concomitant]
     Indication: HYPERTENSION
     Route: 048
     Dates: end: 20090707

REACTIONS (4)
  - ASCITES [None]
  - ENCEPHALOPATHY [None]
  - HEPATIC FAILURE [None]
  - JAUNDICE [None]
